FAERS Safety Report 4624394-7 (Version None)
Quarter: 2005Q1

REPORT INFORMATION
  Report Type: 
  Country: None (occurrence: None)
  Receive Date: 20050330
  Receipt Date: 20050330
  Transmission Date: 20050727
  Serious: Yes (Life-Threatening, Hospitalization)
  Sender: FDA-Public Use
  Company Number: None

PATIENT
  Age: 70 Year
  Sex: Female
  Weight: 68 kg

DRUGS (8)
  1. PACLITAXEL [Suspect]
     Indication: LUNG NEOPLASM MALIGNANT
     Dosage: 50MG/M2, 80M WEEKLY INTRAVENOUS
     Route: 042
     Dates: start: 20041118, end: 20041118
  2. CARBOPLATIN [Suspect]
     Indication: LUNG NEOPLASM MALIGNANT
     Dosage: AUC2, 152 MG WEEKLY INTRAVENOUS
     Route: 042
     Dates: start: 20041118, end: 20041118
  3. DIOVAN [Concomitant]
  4. ZOCOR [Concomitant]
  5. LOPRESSOR [Concomitant]
  6. SPORANOX [Concomitant]
  7. PEPCID [Concomitant]
  8. DECADRON [Concomitant]

REACTIONS (10)
  - BODY TEMPERATURE INCREASED [None]
  - CAPILLARY DISORDER [None]
  - CHILLS [None]
  - DRUG HYPERSENSITIVITY [None]
  - FLUSHING [None]
  - HYPOTENSION [None]
  - INFUSION RELATED REACTION [None]
  - OXYGEN SATURATION DECREASED [None]
  - SKIN DISCOLOURATION [None]
  - TACHYCARDIA [None]
